FAERS Safety Report 9167809 (Version 1)
Quarter: 2013Q1

REPORT INFORMATION
  Report Type: Spontaneous
  Country: MX (occurrence: MX)
  Receive Date: 20130318
  Receipt Date: 20130318
  Transmission Date: 20140127
  Serious: Yes (Death)
  Sender: FDA-Public Use
  Company Number: PHHY2013MX025229

PATIENT
  Age: 80 Year
  Sex: Female

DRUGS (3)
  1. RASILEZ [Suspect]
     Indication: HYPERTENSION
     Dosage: 1 DF, DAILY (300 MG)
     Route: 048
     Dates: start: 201201
  2. ACLASTA [Suspect]
     Dosage: 1 DF, ANNUALLY
  3. ZOMETA [Suspect]
     Dosage: 1 DF, QMO
     Dates: start: 200901

REACTIONS (1)
  - Ovarian cancer [Fatal]
